FAERS Safety Report 8960752 (Version 1)
Quarter: 2012Q4

REPORT INFORMATION
  Report Type: Spontaneous
  Country: US (occurrence: None)
  Receive Date: 20121211
  Receipt Date: 20121211
  Transmission Date: 20130627
  Serious: Yes (Hospitalization)
  Sender: FDA-Public Use
  Company Number: None

PATIENT
  Sex: Female

DRUGS (1)
  1. REVATIO [Suspect]
     Indication: PULMONARY ARTERIAL HYPERTENSION
     Dosage: 20 mg 40 mg TID po
     Route: 048
     Dates: start: 20120813

REACTIONS (4)
  - Dyspnoea [None]
  - Oedema peripheral [None]
  - Dizziness [None]
  - Malaise [None]
